FAERS Safety Report 24254357 (Version 1)
Quarter: 2024Q3

REPORT INFORMATION
  Report Type: Spontaneous
  Country: FR (occurrence: FR)
  Receive Date: 20240827
  Receipt Date: 20240827
  Transmission Date: 20241016
  Serious: Yes (Other)
  Sender: MERCK
  Company Number: None

PATIENT
  Age: 79 Year
  Sex: Male
  Weight: 66 kg

DRUGS (1)
  1. KEYTRUDA [Suspect]
     Active Substance: PEMBROLIZUMAB
     Indication: Bladder transitional cell carcinoma
     Route: 042
     Dates: start: 20231011, end: 20240708

REACTIONS (2)
  - Gastritis [Recovering/Resolving]
  - Sjogren^s syndrome [Not Recovered/Not Resolved]

NARRATIVE: CASE EVENT DATE: 20240701
